FAERS Safety Report 24708465 (Version 1)
Quarter: 2024Q4

REPORT INFORMATION
  Report Type: Spontaneous
  Country: US (occurrence: US)
  Receive Date: 20241207
  Receipt Date: 20241207
  Transmission Date: 20250115
  Serious: Yes (Hospitalization)
  Sender: CADILA
  Company Number: US-CPL-004831

PATIENT
  Age: 34 Year
  Sex: Male

DRUGS (3)
  1. HYDRALAZINE [Suspect]
     Active Substance: HYDRALAZINE HYDROCHLORIDE
     Indication: Hypertension
  2. LOSARTAN [Concomitant]
     Active Substance: LOSARTAN
  3. ALLOPURINOL [Concomitant]
     Active Substance: ALLOPURINOL

REACTIONS (1)
  - Vasculitis [Unknown]
